FAERS Safety Report 24303164 (Version 3)
Quarter: 2024Q4

REPORT INFORMATION
  Report Type: Spontaneous
  Country: JP (occurrence: JP)
  Receive Date: 20240910
  Receipt Date: 20241004
  Transmission Date: 20250115
  Serious: Yes (Death, Other)
  Sender: UNITED THERAPEUTICS
  Company Number: JP-UNITED THERAPEUTICS-UNT-2024-028102

PATIENT
  Age: 72 Year
  Sex: Male
  Weight: 39.9 kg

DRUGS (5)
  1. TYVASO [Suspect]
     Active Substance: TREPROSTINIL
     Indication: Pulmonary hypertension
     Dosage: 12 ?G, QID
     Dates: start: 20240903, end: 20240903
  2. TYVASO [Suspect]
     Active Substance: TREPROSTINIL
     Indication: Interstitial lung disease
  3. CEFOZOPRAN HYDROCHLORIDE [Concomitant]
     Active Substance: CEFOZOPRAN HYDROCHLORIDE
     Indication: Pneumonia
     Dosage: 1 GRAM, Q12H
     Dates: start: 20240902, end: 20240903
  4. MEROPENEM [Concomitant]
     Active Substance: MEROPENEM
     Indication: Pneumonia
     Dosage: 0.5 GRAM, Q8H
     Dates: start: 20240904, end: 20240905
  5. SOLU-MEDROL [Concomitant]
     Active Substance: METHYLPREDNISOLONE SODIUM SUCCINATE
     Indication: Pneumonia
     Dosage: 40 MG, QD
     Dates: start: 20240904, end: 202409

REACTIONS (3)
  - Pneumonia [Fatal]
  - Interstitial lung disease [Unknown]
  - Off label use [Unknown]

NARRATIVE: CASE EVENT DATE: 20240901
